FAERS Safety Report 5878434-8 (Version None)
Quarter: 2008Q3

REPORT INFORMATION
  Report Type: 
  Country: None (occurrence: None)
  Receive Date: 20080911
  Receipt Date: 20080822
  Transmission Date: 20090109
  Serious: Yes (Other)
  Sender: FDA-Public Use
  Company Number: US-GENENTECH-267659

PATIENT
  Age: 34 Year
  Sex: Female

DRUGS (4)
  1. RITUXAN [Suspect]
     Indication: MYOSITIS
     Dosage: 1000 MG, X2
     Dates: start: 20060101
  2. RITUXAN [Suspect]
     Dosage: 750 MG, X2
  3. METHOTREXATE [Suspect]
     Indication: DRUG USE FOR UNKNOWN INDICATION
  4. PREDNISONE TAB [Suspect]
     Indication: DRUG USE FOR UNKNOWN INDICATION

REACTIONS (1)
  - MYCOBACTERIAL INFECTION [None]
